FAERS Safety Report 4664592-X (Version None)
Quarter: 2005Q2

REPORT INFORMATION
  Report Type: 
  Country: None (occurrence: None)
  Receive Date: 20050518
  Receipt Date: 20050511
  Transmission Date: 20051028
  Serious: Yes (Other)
  Sender: FDA-Public Use
  Company Number: A01200502770

PATIENT
  Age: 65 Year
  Sex: Male

DRUGS (3)
  1. LITHIUM CARBONATE [Suspect]
     Route: 065
  2. CLOZARIL [Concomitant]
     Route: 065
  3. VALPROATE SODIUM [Concomitant]
     Route: 065

REACTIONS (1)
  - RENAL FAILURE CHRONIC [None]
